FAERS Safety Report 12792743 (Version 1)
Quarter: 2016Q3

REPORT INFORMATION
  Report Type: Spontaneous
  Country: US (occurrence: US)
  Receive Date: 20160929
  Receipt Date: 20160929
  Transmission Date: 20161109
  Serious: No
  Sender: FDA-Public Use
  Company Number: US-JAZZ-2016-US-011527

PATIENT
  Sex: Male

DRUGS (16)
  1. XYREM [Suspect]
     Active Substance: SODIUM OXYBATE
     Dosage: 4.5 G, BID
     Route: 048
     Dates: start: 201605, end: 2016
  2. NUVIGIL [Concomitant]
     Active Substance: ARMODAFINIL
  3. PRISTIQ EXTENDED-RELEASE [Concomitant]
     Active Substance: DESVENLAFAXINE SUCCINATE
  4. XYREM [Suspect]
     Active Substance: SODIUM OXYBATE
     Indication: CATAPLEXY
     Dosage: 3 G, BID
     Route: 048
     Dates: start: 200302, end: 200306
  5. XYREM [Suspect]
     Active Substance: SODIUM OXYBATE
     Dosage: 3.75 G, BID
     Route: 048
     Dates: start: 200306, end: 2004
  6. XYREM [Suspect]
     Active Substance: SODIUM OXYBATE
     Dosage: 2.25 G, BID
     Route: 048
     Dates: start: 201605, end: 201605
  7. BACLOFEN. [Concomitant]
     Active Substance: BACLOFEN
  8. CHLORPROMAZINE. [Concomitant]
     Active Substance: CHLORPROMAZINE
  9. VIAGRA [Concomitant]
     Active Substance: SILDENAFIL CITRATE
  10. XYREM [Suspect]
     Active Substance: SODIUM OXYBATE
     Indication: NARCOLEPSY
     Dosage: 2.25 G, BID
     Route: 048
     Dates: start: 200212, end: 200302
  11. XYREM [Suspect]
     Active Substance: SODIUM OXYBATE
     Dosage: DOSE ADJUSTMENTS
     Route: 048
     Dates: start: 201605, end: 201605
  12. DIAZEPAM. [Concomitant]
     Active Substance: DIAZEPAM
  13. ALEVE [Concomitant]
     Active Substance: NAPROXEN SODIUM
  14. METHYLPHENIDATE. [Concomitant]
     Active Substance: METHYLPHENIDATE
  15. PANTOPRAZOLE SODIUM. [Concomitant]
     Active Substance: PANTOPRAZOLE SODIUM
  16. ATORVASTATIN [Concomitant]
     Active Substance: ATORVASTATIN

REACTIONS (2)
  - Drug intolerance [Unknown]
  - Malaise [Unknown]
